FAERS Safety Report 16003781 (Version 3)
Quarter: 2021Q1

REPORT INFORMATION
  Report Type: Other
  Country: US (occurrence: US)
  Receive Date: 20190226
  Receipt Date: 20210113
  Transmission Date: 20210419
  Serious: Yes (Hospitalization, Other)
  Sender: FDA-Public Use
  Company Number: US-ROCHE-2266863

PATIENT
  Age: 55 Year
  Sex: Female
  Weight: 101.24 kg

DRUGS (3)
  1. OCREVUS [Suspect]
     Active Substance: OCRELIZUMAB
     Indication: RELAPSING-REMITTING MULTIPLE SCLEROSIS
     Dosage: DAY 1 AND DAY 15,
     Route: 042
     Dates: start: 20180823, end: 20180906
  2. OCREVUS [Suspect]
     Active Substance: OCRELIZUMAB
     Indication: SECONDARY PROGRESSIVE MULTIPLE SCLEROSIS
     Route: 042
     Dates: start: 201903
  3. OCREVUS [Suspect]
     Active Substance: OCRELIZUMAB
     Indication: MULTIPLE SCLEROSIS
     Dosage: DAY 1 AND DAY 15,
     Route: 042
     Dates: start: 20180906

REACTIONS (9)
  - Relapsing multiple sclerosis [Recovered/Resolved]
  - Vasculitis [Recovered/Resolved]
  - Spinal stroke [Not Recovered/Not Resolved]
  - Spinal fracture [Not Recovered/Not Resolved]
  - Fall [Unknown]
  - Urinary tract infection [Not Recovered/Not Resolved]
  - Spinal fracture [Recovered/Resolved]
  - Osteopenia [Unknown]
  - Meningeal disorder [Not Recovered/Not Resolved]

NARRATIVE: CASE EVENT DATE: 201810
